FAERS Safety Report 13125142 (Version 2)
Quarter: 2017Q1

REPORT INFORMATION
  Report Type: Report from Study
  Country: JP (occurrence: JP)
  Receive Date: 20170118
  Receipt Date: 20170125
  Transmission Date: 20170428
  Serious: Yes (Hospitalization)
  Sender: FDA-Public Use
  Company Number: JP-PFIZER INC-2017007290

PATIENT
  Age: 66 Year
  Sex: Female

DRUGS (23)
  1. LEVOTHYROXINE SODIUM. [Concomitant]
     Active Substance: LEVOTHYROXINE SODIUM
     Dosage: 100 UG, DAILY
     Route: 048
     Dates: start: 20161124, end: 20161207
  2. MINODRONIC ACID [Concomitant]
     Active Substance: MINODRONIC ACID
     Indication: OSTEOPOROSIS
     Dosage: 50 MG, MONTHLY
     Route: 048
     Dates: start: 201506
  3. WHITE PETROLATUM [Concomitant]
     Active Substance: PETROLATUM
     Indication: RASH
     Dosage: 100 G, AS NEEDED
     Route: 062
     Dates: start: 20160726
  4. LEVOTHYROXINE SODIUM. [Concomitant]
     Active Substance: LEVOTHYROXINE SODIUM
     Dosage: 50 UG, 1X/DAY
     Route: 048
     Dates: start: 20170105
  5. WHITE PETROLATUM [Concomitant]
     Active Substance: PETROLATUM
     Indication: PALMAR-PLANTAR ERYTHRODYSAESTHESIA SYNDROME
     Dosage: 100 G, AS NEEDED
     Route: 062
     Dates: start: 20160722
  6. LEVOTHYROXINE SODIUM. [Concomitant]
     Active Substance: LEVOTHYROXINE SODIUM
     Indication: HYPOTHYROIDISM
     Dosage: 50 UG, ALTERNATE DAY
     Route: 048
     Dates: start: 20160801
  7. DEQUALINIUM CHLORIDE [Concomitant]
     Active Substance: DEQUALINIUM CHLORIDE
     Indication: NASOPHARYNGITIS
     Dosage: 0.25 MG, AS NEEDED
     Route: 061
     Dates: start: 20160830
  8. DIPHENHYDRAMINE. [Concomitant]
     Active Substance: DIPHENHYDRAMINE
     Indication: VULVAR EROSION
     Dosage: UNK
  9. ELDECALCITOL [Concomitant]
     Active Substance: ELDECALCITOL
     Indication: OSTEOPOROSIS
     Dosage: 0.75 UG, UNK
     Route: 048
     Dates: start: 201506
  10. ROSUVASTATIN. [Concomitant]
     Active Substance: ROSUVASTATIN
     Indication: HYPERLIPIDAEMIA
     Dosage: 2.5 MG, 1X/DAY
     Route: 048
     Dates: start: 2014
  11. SODIUM GUALENATE HYDRATE [Concomitant]
     Active Substance: SODIUM GUALENATE MONOHYDRATE
     Indication: PROPHYLAXIS
     Dosage: 4 %, AS NEEDED
     Route: 061
     Dates: start: 20160620
  12. GLUCOSAMINE CHONDROITIN COMPLEX [Concomitant]
     Active Substance: CHONDROITIN SULFATE (BOVINE)\GLUCOSAMINE HYDROCHLORIDE
     Indication: PROPHYLAXIS
     Dosage: UNK, DAILY (8 UNIT NOT PROVIDED)
     Route: 048
  13. LEVOTHYROXINE SODIUM. [Concomitant]
     Active Substance: LEVOTHYROXINE SODIUM
     Dosage: 50 UG, DAILY
     Route: 048
     Dates: start: 20161013, end: 20161123
  14. NADIFLOXACIN [Concomitant]
     Active Substance: NADIFLOXACIN
     Indication: RASH
     Dosage: 10 G, DAILY
     Route: 062
     Dates: start: 20161128
  15. SUNITINIB MALATE. [Suspect]
     Active Substance: SUNITINIB MALATE
     Indication: RENAL CELL CARCINOMA
     Dosage: 37.5 MG, DAILY (MOST RECENT DOSE PRIOR TO AE: ON 07DEC2016)
     Route: 048
     Dates: start: 20160606
  16. MAGNESIUM OXIDE. [Concomitant]
     Active Substance: MAGNESIUM OXIDE
     Indication: CONSTIPATION
     Dosage: 330 MG, AS NEEDED
     Route: 048
     Dates: start: 20160915
  17. WHITE PETROLATUM [Concomitant]
     Active Substance: PETROLATUM
     Indication: ECZEMA
     Dosage: 100 G, AS NEEDED (PRN)
     Route: 062
     Dates: start: 20160721
  18. LEVOTHYROXINE SODIUM. [Concomitant]
     Active Substance: LEVOTHYROXINE SODIUM
     Dosage: 50 UG, DAILY
     Route: 048
     Dates: start: 20160915
  19. AMLODIPINE BESILATE [Concomitant]
     Active Substance: AMLODIPINE BESYLATE
     Indication: BLOOD PRESSURE INCREASED
     Dosage: 5 MG, DAILY
     Route: 048
     Dates: start: 20160818
  20. TOCOPHEROL ACETATE [Concomitant]
     Active Substance: .ALPHA.-TOCOPHEROL ACETATE
     Dosage: UNK
  21. CLOBETASONE BUTYRATE [Concomitant]
     Active Substance: CLOBETASONE BUTYRATE
     Indication: VULVAR EROSION
     Dosage: 10 G, UNK
     Route: 062
     Dates: start: 20161208
  22. VALSARTAN. [Concomitant]
     Active Substance: VALSARTAN
     Indication: HYPERTENSION
     Dosage: 80 MG, DAILY
     Route: 048
     Dates: start: 2014
  23. LIDOCAINE. [Concomitant]
     Active Substance: LIDOCAINE
     Dosage: UNK

REACTIONS (1)
  - Diverticulitis [Recovered/Resolved]

NARRATIVE: CASE EVENT DATE: 20161210
